FAERS Safety Report 10024478 (Version 1)
Quarter: 2014Q1

REPORT INFORMATION
  Report Type: Spontaneous
  Country: US (occurrence: None)
  Receive Date: 20140319
  Receipt Date: 20140319
  Transmission Date: 20141002
  Serious: Yes (Death, Life-Threatening, Hospitalization, Other)
  Sender: FDA-Public Use
  Company Number: None

PATIENT
  Sex: 0

DRUGS (1)
  1. HYDROGEN PEROXIDE [Suspect]

REACTIONS (9)
  - Overdose [None]
  - Nausea [None]
  - Vomiting [None]
  - Abdominal pain [None]
  - Paraesthesia [None]
  - Muscular weakness [None]
  - Air embolism [None]
  - Depressed level of consciousness [None]
  - Haematemesis [None]
